FAERS Safety Report 25194682 (Version 2)
Quarter: 2025Q2

REPORT INFORMATION
  Report Type: Report from Study
  Country: US (occurrence: US)
  Receive Date: 20250414
  Receipt Date: 20250421
  Transmission Date: 20250716
  Serious: Yes (Hospitalization, Other)
  Sender: TAKEDA
  Company Number: US-TAKEDA-2025TUS035267

PATIENT
  Age: 73 Year
  Sex: Female
  Weight: 53 kg

DRUGS (17)
  1. FRUQUINTINIB [Suspect]
     Active Substance: FRUQUINTINIB
     Indication: Colorectal cancer
  2. ALBUTEROL [Concomitant]
     Active Substance: ALBUTEROL
  3. AMLODIPINE AND OLMESARTAN MEDOXOMIL [Concomitant]
     Active Substance: AMLODIPINE BESYLATE\OLMESARTAN MEDOXOMIL
  4. ATORVASTATIN [Concomitant]
     Active Substance: ATORVASTATIN
  5. LIDOCAINE AND PRILOCAINE [Concomitant]
     Active Substance: LIDOCAINE\PRILOCAINE
  6. MARINOL [Concomitant]
     Active Substance: DRONABINOL
  7. NEURONTIN [Concomitant]
     Active Substance: GABAPENTIN
  8. ONDANSETRON [Concomitant]
     Active Substance: ONDANSETRON
  9. PERCOCET [Concomitant]
     Active Substance: ACETAMINOPHEN\OXYCODONE HYDROCHLORIDE
  10. PANTOPRAZOLE [Concomitant]
     Active Substance: PANTOPRAZOLE
     Indication: Gastrooesophageal reflux disease
  11. SENEXON-S [Concomitant]
     Active Substance: DOCUSATE SODIUM\SENNOSIDES A AND B
     Indication: Faeces soft
  12. TRAMADOL [Concomitant]
     Active Substance: TRAMADOL
  13. TRIAMTERENE [Concomitant]
     Active Substance: TRIAMTERENE
  14. LOSARTAN [Concomitant]
     Active Substance: LOSARTAN
  15. ZOFRAN [Concomitant]
     Active Substance: ONDANSETRON HYDROCHLORIDE
     Indication: Nausea
  16. AMLODIPINE [Concomitant]
     Active Substance: AMLODIPINE BESYLATE
     Indication: Blood pressure measurement
  17. MORPHINE [Concomitant]
     Active Substance: MORPHINE

REACTIONS (5)
  - Colon cancer [Unknown]
  - Pain [Recovering/Resolving]
  - Blood pressure increased [Recovering/Resolving]
  - Emotional distress [Unknown]
  - Fatigue [Unknown]

NARRATIVE: CASE EVENT DATE: 20250404
